FAERS Safety Report 24436590 (Version 1)
Quarter: 2024Q4

REPORT INFORMATION
  Report Type: Spontaneous
  Country: FR (occurrence: FR)
  Receive Date: 20241015
  Receipt Date: 20241015
  Transmission Date: 20250114
  Serious: Yes (Death, Life-Threatening, Other)
  Sender: RANBAXY
  Company Number: FR-EMA-DD-20180313-nsinghevhp-122652

PATIENT
  Age: 38 Year
  Sex: Female

DRUGS (13)
  1. CYCLOSPORINE [Suspect]
     Active Substance: CYCLOSPORINE
     Indication: Prophylaxis against graft versus host disease
     Dosage: UNK
     Route: 065
     Dates: start: 2007
  2. CYCLOSPORINE [Suspect]
     Active Substance: CYCLOSPORINE
     Indication: Allogenic stem cell transplantation
     Dosage: UNK
     Route: 065
     Dates: start: 2007
  3. AMBISOME [Suspect]
     Active Substance: AMPHOTERICIN B
     Indication: Fusarium infection
     Dosage: 10 MILLIGRAM/KILOGRAM, DAILY
     Route: 065
  4. AMBISOME [Suspect]
     Active Substance: AMPHOTERICIN B
     Indication: Scopulariopsis infection
     Dosage: 3 MILLIGRAM/KILOGRAM, DAILY
     Route: 065
  5. AMBISOME [Suspect]
     Active Substance: AMPHOTERICIN B
     Indication: Bronchopulmonary aspergillosis
  6. MYCOPHENOLIC ACID [Suspect]
     Active Substance: MYCOPHENOLIC ACID
     Indication: Allogenic stem cell transplantation
     Dosage: UNK
     Route: 065
     Dates: start: 2007
  7. MYCOPHENOLIC ACID [Suspect]
     Active Substance: MYCOPHENOLIC ACID
     Dosage: UNK
     Route: 065
     Dates: start: 2007
  8. MYCOPHENOLIC ACID [Suspect]
     Active Substance: MYCOPHENOLIC ACID
     Dosage: UNK
     Route: 065
  9. VORICONAZOLE [Suspect]
     Active Substance: VORICONAZOLE
     Indication: Scopulariopsis infection
     Dosage: 400 MILLIGRAM, DAILY
     Route: 065
  10. TEICOPLANIN [Concomitant]
     Active Substance: TEICOPLANIN
     Indication: Bacterial infection
     Dosage: UNK
     Route: 065
  11. CASPOFUNGIN [Concomitant]
     Active Substance: CASPOFUNGIN
     Indication: Scopulariopsis infection
     Dosage: 70 MILLIGRAM
     Route: 065
  12. CASPOFUNGIN [Concomitant]
     Active Substance: CASPOFUNGIN
     Dosage: 50 MILLIGRAM
     Route: 065
  13. CEFTAZIDIME [Concomitant]
     Active Substance: CEFTAZIDIME
     Indication: Bacterial infection
     Dosage: UNK
     Route: 065

REACTIONS (13)
  - Systemic mycosis [Fatal]
  - Skin necrosis [Fatal]
  - Chronic graft versus host disease [Recovering/Resolving]
  - Graft versus host disease in skin [Recovering/Resolving]
  - Drug ineffective [Unknown]
  - Lung disorder [Fatal]
  - Renal disorder [Fatal]
  - Graft versus host disease in liver [Recovering/Resolving]
  - Fungal test positive [Fatal]
  - Multiple organ dysfunction syndrome [Fatal]
  - Graft versus host disease in gastrointestinal tract [Recovering/Resolving]
  - Inflammation [Fatal]
  - Off label use [Unknown]

NARRATIVE: CASE EVENT DATE: 20071001
